FAERS Safety Report 5107200-6 (Version None)
Quarter: 2006Q3

REPORT INFORMATION
  Report Type: 
  Country: None (occurrence: None)
  Receive Date: 20060913
  Receipt Date: 20060904
  Transmission Date: 20061208
  Serious: Yes (Death, Hospitalization)
  Sender: FDA-Public Use
  Company Number: GXKR2006US05422

PATIENT
  Age: 43 Year
  Sex: Female

DRUGS (14)
  1. WARFARIN SODIUM [Suspect]
     Indication: PULMONARY EMBOLISM
     Dosage: 5 MG, QW4; SEE IMAGE
  2. DIPHENHYDRAMINE HCL [Concomitant]
  3. ASPIRIN [Concomitant]
  4. ENTERIC-FILM-COATED TABLET [Concomitant]
  5. TEMAZEPAM [Concomitant]
  6. PAROXETINE [Concomitant]
  7. NITROGLYCERIN [Concomitant]
  8. BACITRACIN [Concomitant]
  9. RANITIDINE [Concomitant]
  10. METHYLPREDNISOLONE [Concomitant]
  11. IBUPROFEN [Concomitant]
  12. OXYBUTYNIN CHLORIDE [Concomitant]
  13. ALBUTEROL W/IPRATROPIUM (IPRATROPIUM, SALBUTAMOL) [Concomitant]
  14. GUAIFENESIN W/DEXTROMETHORPHAN (DEXTROMETHORPHAN, GUAIFENESIN) [Concomitant]

REACTIONS (18)
  - BLOOD BLISTER [None]
  - DERMATITIS [None]
  - DRUG ABUSER [None]
  - DRUG HYPERSENSITIVITY [None]
  - DYSPNOEA [None]
  - INTERNATIONAL NORMALISED RATIO DECREASED [None]
  - LEUKOCYTOCLASTIC VASCULITIS [None]
  - PAIN [None]
  - PULMONARY EMBOLISM [None]
  - RASH ERYTHEMATOUS [None]
  - REFUSAL OF TREATMENT BY PATIENT [None]
  - SCAB [None]
  - SKIN LESION [None]
  - SKIN NECROSIS [None]
  - SKIN ULCER [None]
  - TACHYPNOEA [None]
  - THERAPY NON-RESPONDER [None]
  - TREATMENT NONCOMPLIANCE [None]
